FAERS Safety Report 4802880-4 (Version None)
Quarter: 2005Q4

REPORT INFORMATION
  Report Type: 
  Country: None (occurrence: None)
  Receive Date: 20051013
  Receipt Date: 20051003
  Transmission Date: 20060501
  Serious: Yes (Life-Threatening)
  Sender: FDA-Public Use
  Company Number: 2005137733

PATIENT
  Age: 70 Year
  Sex: Female

DRUGS (1)
  1. SULPERAZON (SULBACTAM, CEFOPERAZONE) [Suspect]
     Dosage: 2 GRAM (1 IN 1 TOTAL) INTRAVENOUS
     Route: 042
     Dates: start: 20050919, end: 20050919

REACTIONS (4)
  - CHEST DISCOMFORT [None]
  - DEPRESSED LEVEL OF CONSCIOUSNESS [None]
  - PRURITUS [None]
  - SHOCK [None]
